FAERS Safety Report 15285638 (Version 3)
Quarter: 2018Q4

REPORT INFORMATION
  Report Type: Report from Study
  Country: US (occurrence: US)
  Receive Date: 20180816
  Receipt Date: 20181213
  Transmission Date: 20190204
  Serious: Yes (Hospitalization)
  Sender: FDA-Public Use
  Company Number: PHHO2018US009248

PATIENT
  Age: 17 Year
  Sex: Female
  Weight: 46 kg

DRUGS (4)
  1. GSK2118436 [Suspect]
     Active Substance: DABRAFENIB
     Dosage: 50 MG, BID
     Route: 048
     Dates: start: 20180810
  2. GSK1120212 [Suspect]
     Active Substance: TRAMETINIB
     Indication: GLIOMA
     Dosage: 1 MG, QD
     Route: 048
     Dates: start: 20180808
  3. GSK1120212 [Suspect]
     Active Substance: TRAMETINIB
     Dosage: 0.5 MG, QD
     Route: 048
     Dates: start: 20180810
  4. GSK2118436 [Suspect]
     Active Substance: DABRAFENIB
     Indication: GLIOMA
     Dosage: 100 MG, BID
     Route: 048
     Dates: start: 20180808

REACTIONS (3)
  - Agitation [Recovered/Resolved]
  - Confusional state [Recovered/Resolved]
  - Dysarthria [Recovered/Resolved]

NARRATIVE: CASE EVENT DATE: 20180808
